FAERS Safety Report 8588669-1 (Version None)
Quarter: 2012Q3

REPORT INFORMATION
  Report Type: 
  Country: None (occurrence: None)
  Receive Date: 20120813
  Receipt Date: 20120801
  Transmission Date: 20120928
  Serious: Yes (Hospitalization)
  Sender: FDA-Public Use
  Company Number: US-BAYER-2012-079219

PATIENT
  Age: 22 Year
  Sex: Female
  Weight: 56.689 kg

DRUGS (14)
  1. YAZ [Suspect]
     Dosage: UNK
     Dates: start: 20070801, end: 20070901
  2. CEFTRIAXONE [Concomitant]
     Dosage: 1 G, UNK
     Route: 042
     Dates: start: 20070919
  3. MEFOXIN [Concomitant]
     Dosage: 1 G, UNK
     Dates: start: 20070919
  4. CIPROFLOXACIN [Concomitant]
     Dosage: 500 MG, UNK
     Route: 048
     Dates: start: 20070827, end: 20070905
  5. CIPROFLOXACIN [Concomitant]
     Dosage: 5MG/325MG
     Route: 048
     Dates: start: 20070828
  6. LEVAQUIN [Concomitant]
     Dosage: 500 MG, UNK
     Route: 048
     Dates: start: 20070919
  7. HYDROCODONE BITARTRATE + ACETAMINOPHEN [Concomitant]
     Dosage: 5MG/500MG
     Route: 048
     Dates: start: 20070919
  8. PEPCID [Concomitant]
     Dosage: 20 MG, UNK
     Route: 042
     Dates: start: 20070919
  9. MEFOXIN [Concomitant]
     Dosage: 2 G, UNK
  10. TORADOL [Concomitant]
     Dosage: 30 MG, UNK
     Route: 042
     Dates: start: 20070919
  11. HYDROCODONE BITARTRATE + ACETAMINOPHEN [Concomitant]
     Dosage: 5MG/325MG
     Route: 048
     Dates: start: 20070828
  12. GASTROGRAFIN [Concomitant]
     Dosage: 10 ML, UNK
     Route: 048
     Dates: start: 20070919
  13. SUDAFED 12 HOUR [Concomitant]
     Dosage: UNK
     Route: 048
     Dates: start: 20070919
  14. VICODIN [Concomitant]

REACTIONS (1)
  - PULMONARY EMBOLISM [None]
